FAERS Safety Report 14766768 (Version 5)
Quarter: 2021Q2

REPORT INFORMATION
  Report Type: Spontaneous
  Country: US (occurrence: US)
  Receive Date: 20180417
  Receipt Date: 20210422
  Transmission Date: 20210716
  Serious: No
  Sender: FDA-Public Use
  Company Number: PHEH2018US014239

PATIENT
  Age: 62 Year
  Sex: Female

DRUGS (4)
  1. TAFINLAR [Suspect]
     Active Substance: DABRAFENIB MESYLATE
     Dosage: 50 MG, Q12H
     Route: 048
     Dates: start: 20180501
  2. MEKINIST [Suspect]
     Active Substance: TRAMETINIB DIMETHYL SULFOXIDE
     Indication: THYROID CANCER
     Dosage: 1 MG, QD
     Route: 048
     Dates: start: 20180226
  3. TAFINLAR [Suspect]
     Active Substance: DABRAFENIB MESYLATE
     Indication: LUNG NEOPLASM MALIGNANT
     Dosage: 50 MG, BID
     Route: 048
     Dates: start: 20180226
  4. TAFINLAR [Suspect]
     Active Substance: DABRAFENIB MESYLATE
     Indication: THYROID CANCER
     Dosage: 75 MG, BID
     Route: 048
     Dates: start: 20180220

REACTIONS (9)
  - Wheezing [Recovering/Resolving]
  - Vision blurred [Recovering/Resolving]
  - Vomiting [Not Recovered/Not Resolved]
  - Oedema peripheral [Not Recovered/Not Resolved]
  - Drug intolerance [Unknown]
  - Cough [Not Recovered/Not Resolved]
  - Rash [Unknown]
  - Dyspnoea [Unknown]
  - Visual impairment [Unknown]

NARRATIVE: CASE EVENT DATE: 20180410
